FAERS Safety Report 10331554 (Version 3)
Quarter: 2014Q3

REPORT INFORMATION
  Report Type: Spontaneous
  Country: US (occurrence: US)
  Receive Date: 20140722
  Receipt Date: 20140915
  Transmission Date: 20150326
  Serious: Yes (Hospitalization, Other)
  Sender: FDA-Public Use
  Company Number: US-BEH-2014043899

PATIENT
  Age: 57 Year
  Sex: Female
  Weight: 92 kg

DRUGS (45)
  1. PRIVIGEN [Suspect]
     Active Substance: HUMAN IMMUNOGLOBULIN G
     Indication: HYPOGAMMAGLOBULINAEMIA
     Route: 042
  2. PRIVIGEN [Suspect]
     Active Substance: HUMAN IMMUNOGLOBULIN G
     Indication: HYPOGAMMAGLOBULINAEMIA
     Dosage: 1X EVERY 2-3 WEEKS
     Route: 042
  3. ACETAMINOPHEN. [Concomitant]
     Active Substance: ACETAMINOPHEN
  4. CYMBALTA [Concomitant]
     Active Substance: DULOXETINE HYDROCHLORIDE
  5. LOSARTAN [Concomitant]
     Active Substance: LOSARTAN
  6. LAMOTRIGINE. [Concomitant]
     Active Substance: LAMOTRIGINE
  7. CARBAMAZEPINE. [Concomitant]
     Active Substance: CARBAMAZEPINE
  8. HYDROCODONE ACETAMINOPHEN [Concomitant]
     Active Substance: ACETAMINOPHEN\HYDROCODONE BITARTRATE
  9. DILTIAZEM HYDROCHLORIDE EXTENDED RELEASE [Concomitant]
     Active Substance: DILTIAZEM HYDROCHLORIDE
  10. IBUPROFEN. [Concomitant]
     Active Substance: IBUPROFEN
  11. GAMUNEX [Concomitant]
     Active Substance: HUMAN IMMUNOGLOBULIN G
  12. FENTANYL. [Concomitant]
     Active Substance: FENTANYL
  13. PROMETHAZINE-DM [Concomitant]
  14. EPIPEN [Concomitant]
     Active Substance: EPINEPHRINE
  15. CLINDAMYCIN [Concomitant]
     Active Substance: CLINDAMYCIN\CLINDAMYCIN PHOSPHATE
  16. SUMATRIPTAN [Concomitant]
     Active Substance: SUMATRIPTAN
  17. METOPROLOL [Concomitant]
     Active Substance: METOPROLOL
  18. FLONASE [Concomitant]
     Active Substance: FLUTICASONE PROPIONATE
  19. ZOFRAN [Concomitant]
     Active Substance: ONDANSETRON HYDROCHLORIDE
  20. SODIUM CHLORIDE. [Concomitant]
     Active Substance: SODIUM CHLORIDE
  21. NITROSTAT [Concomitant]
     Active Substance: NITROGLYCERIN
  22. FLOVENT HFA [Concomitant]
     Active Substance: FLUTICASONE PROPIONATE
  23. PULMICORT TURBUHALER [Concomitant]
     Active Substance: BUDESONIDE
  24. TOPAMAX [Concomitant]
     Active Substance: TOPIRAMATE
  25. PLAVIX [Concomitant]
     Active Substance: CLOPIDOGREL BISULFATE
  26. ZANAFLEX [Concomitant]
     Active Substance: TIZANIDINE HYDROCHLORIDE
  27. DEXTROSE. [Concomitant]
     Active Substance: DEXTROSE
  28. DIPHENHYDRAMINE [Concomitant]
     Active Substance: DIPHENHYDRAMINE
  29. CHLORHEXIDINE [Concomitant]
     Active Substance: CHLORHEXIDINE
  30. ALL OTHER THERAPEUTIC PRODUCTS [Concomitant]
     Active Substance: UNSPECIFIED INGREDIENT
  31. ASPIRIN. [Concomitant]
     Active Substance: ASPIRIN
  32. NORMAL SALINE [Concomitant]
     Active Substance: SODIUM CHLORIDE
  33. OXYGEN. [Concomitant]
     Active Substance: OXYGEN
  34. LOVASTATIN. [Concomitant]
     Active Substance: LOVASTATIN
  35. ACCOLATE [Concomitant]
     Active Substance: ZAFIRLUKAST
  36. XANAX [Concomitant]
     Active Substance: ALPRAZOLAM
  37. RHINOCORT [Concomitant]
     Active Substance: BUDESONIDE
  38. SYMBICORT [Concomitant]
     Active Substance: BUDESONIDE\FORMOTEROL FUMARATE DIHYDRATE
  39. BUSPIRONE [Concomitant]
     Active Substance: BUSPIRONE HYDROCHLORIDE
  40. BUTALB-ACETAMIN-CAFF [Concomitant]
  41. NORTRIPTYLINE [Concomitant]
     Active Substance: NORTRIPTYLINE
  42. CLONAZEPAM. [Concomitant]
     Active Substance: CLONAZEPAM
  43. IPRAT-ALBUT SOLN [Concomitant]
  44. SEROQUEL [Concomitant]
     Active Substance: QUETIAPINE FUMARATE
  45. CHERATUSSIN AC [Concomitant]
     Active Substance: CODEINE PHOSPHATE\GUAIFENESIN

REACTIONS (2)
  - Drug dose omission [Unknown]
  - Cerebrovascular accident [Unknown]

NARRATIVE: CASE EVENT DATE: 201407
